FAERS Safety Report 15550437 (Version 4)
Quarter: 2018Q4

REPORT INFORMATION
  Report Type: Spontaneous
  Country: US (occurrence: US)
  Receive Date: 20181025
  Receipt Date: 20181207
  Transmission Date: 20190205
  Serious: No
  Sender: FDA-Public Use
  Company Number: US-PFIZER INC-2018430584

PATIENT
  Age: 84 Year
  Sex: Female
  Weight: 69 kg

DRUGS (1)
  1. PREMARIN [Suspect]
     Active Substance: ESTROGENS, CONJUGATED
     Indication: VULVOVAGINAL DISCOMFORT
     Dosage: UNK UNK, 2X/WEEK (0.5 ON THE TUBE; SHE SCREWS THE ADAPTOR ON AND PRESSES UP TO 0.5, INSERTED VAGINA)
     Route: 067
     Dates: start: 2016

REACTIONS (8)
  - Dysuria [Unknown]
  - Osteoporosis [Unknown]
  - Feeling abnormal [Unknown]
  - Intentional product misuse [Unknown]
  - Body height decreased [Unknown]
  - Urinary tract infection [Unknown]
  - Pain [Recovering/Resolving]
  - Nervousness [Unknown]

NARRATIVE: CASE EVENT DATE: 2017
